FAERS Safety Report 9768003 (Version 1)
Quarter: 2013Q4

REPORT INFORMATION
  Report Type: Spontaneous
  Country: US (occurrence: None)
  Receive Date: 20131217
  Receipt Date: 20131217
  Transmission Date: 20140711
  Serious: Yes (Hospitalization)
  Sender: FDA-Public Use
  Company Number: 2012BAX013656

PATIENT
  Age: 10 Month
  Sex: Female
  Weight: 9 kg

DRUGS (1)
  1. GAMMAGARD LIQUID (IMMUNOGLOBULIN, NORMAL HUMAN) (SOLUTION FOR INFUSION) [Suspect]
     Indication: PRIMARY IMMUNODEFICIENCY SYNDROME
     Dosage: 0.1429 GM (4 GM, 1 IN 4 WK) , INTRAVENOUS (NOT   OTHERWISE SPECIFIED)

REACTIONS (1)
  - Diarrhoea [None]
